FAERS Safety Report 23292797 (Version 2)
Quarter: 2023Q4

REPORT INFORMATION
  Report Type: Spontaneous
  Country: US (occurrence: US)
  Receive Date: 20231213
  Receipt Date: 20231227
  Transmission Date: 20240110
  Serious: Yes (Life-Threatening)
  Sender: FDA-Public Use
  Company Number: US-SEPTODONT-2023018174

PATIENT
  Sex: Female

DRUGS (1)
  1. CITANEST PLAIN [Suspect]
     Active Substance: PRILOCAINE HYDROCHLORIDE
     Indication: Dental local anaesthesia
     Route: 065

REACTIONS (1)
  - Overdose [Unknown]
